FAERS Safety Report 20371497 (Version 2)
Quarter: 2022Q1

REPORT INFORMATION
  Report Type: Spontaneous
  Country: JP (occurrence: JP)
  Receive Date: 20220124
  Receipt Date: 20220203
  Transmission Date: 20220423
  Serious: Yes (Other)
  Sender: FDA-Public Use
  Company Number: JP-ALK-ABELLO A/S-2022AA000161

PATIENT

DRUGS (1)
  1. MITICURE [Suspect]
     Active Substance: DERMATOPHAGOIDES FARINAE\DERMATOPHAGOIDES PTERONYSSINUS
     Indication: Product used for unknown indication
     Dosage: UNK
     Route: 060
     Dates: start: 20180613, end: 20180821

REACTIONS (1)
  - Oral neoplasm [Unknown]
